FAERS Safety Report 9651950 (Version 4)
Quarter: 2013Q4

REPORT INFORMATION
  Report Type: Spontaneous
  Country: US (occurrence: US)
  Receive Date: 20131029
  Receipt Date: 20131206
  Transmission Date: 20140711
  Serious: Yes (Other)
  Sender: FDA-Public Use
  Company Number: PHHY2011US47818

PATIENT
  Sex: Male

DRUGS (14)
  1. BACLOFEN INTRATHECAL [Suspect]
     Indication: PAIN
     Dosage: UNK UKN, UNK
     Route: 037
  2. METHADONE [Suspect]
     Dosage: UNK UKN, UNK
  3. CLONIDINE HYDROCHLORIDE [Suspect]
     Dosage: UNK UKN, UNK
     Route: 037
  4. DILAUDID [Suspect]
     Dosage: 3.0 MG, DAILY
     Route: 037
  5. DILAUDID [Suspect]
     Dosage: 1.0 UNK UNK
     Route: 037
  6. BUPIVACAINE [Suspect]
     Dosage: UNK UKN, UNK
  7. LORTAB [Suspect]
     Indication: PAIN
     Dosage: UNK UKN, UNK
  8. OXYCONTIN [Suspect]
     Indication: PAIN
     Dosage: UNK UKN, UNK
  9. HYDROCODONE [Suspect]
     Dosage: 6 DF DAILY
     Route: 048
  10. NEUROTIN//GABAPENTIN [Suspect]
     Indication: PAIN
     Dosage: 300 MG DAILY
  11. SUFENTANIL [Suspect]
     Dosage: 4.9 UNK, UNK
     Route: 037
  12. FENTANYL [Suspect]
     Dosage: 150 MG, UNK
     Route: 062
  13. FENTANYL [Suspect]
     Dosage: 2 PATCHES (12.5 MG) DAILY
     Route: 062
  14. SUFENTA [Suspect]
     Dosage: UNK UKN, UNK

REACTIONS (12)
  - Weight decreased [Recovered/Resolved]
  - Back injury [Recovered/Resolved]
  - Hypoaesthesia [Recovered/Resolved]
  - Performance status decreased [Recovered/Resolved]
  - Pain in extremity [Recovered/Resolved]
  - Musculoskeletal pain [Recovered/Resolved]
  - Pain [Recovered/Resolved]
  - Spinal pain [Recovered/Resolved]
  - Implant site inflammation [Recovered/Resolved]
  - Therapeutic response decreased [Recovered/Resolved]
  - Back pain [Unknown]
  - Nerve injury [Unknown]
